FAERS Safety Report 16974089 (Version 1)
Quarter: 2019Q4

REPORT INFORMATION
  Report Type: Spontaneous
  Country: FR (occurrence: FR)
  Receive Date: 20191030
  Receipt Date: 20191030
  Transmission Date: 20200122
  Serious: Yes (Other)
  Sender: FDA-Public Use
  Company Number: FR-TEVA-2019-FR-1129345

PATIENT
  Age: 69 Year
  Sex: Female
  Weight: 52 kg

DRUGS (1)
  1. QVAR [Suspect]
     Active Substance: BECLOMETHASONE DIPROPIONATE
     Indication: ASTHMA
     Dosage: FOR 1 YEAR AT THIS DOSAGE, 800 MCG
     Route: 055
     Dates: start: 20151012, end: 20190916

REACTIONS (2)
  - Asthenia [Recovering/Resolving]
  - Cortisol decreased [Recovering/Resolving]

NARRATIVE: CASE EVENT DATE: 201906
